FAERS Safety Report 14179330 (Version 1)
Quarter: 2017Q4

REPORT INFORMATION
  Report Type: Spontaneous
  Country: US (occurrence: US)
  Receive Date: 20171110
  Receipt Date: 20171110
  Transmission Date: 20180321
  Serious: No
  Sender: FDA-Public Use
  Company Number: US-RISING PHARMACEUTICALS, INC.-2017RIS00150

PATIENT
  Age: 61 Year
  Sex: Female
  Weight: 87.75 kg

DRUGS (16)
  1. CROMOLYN SODIUM. [Suspect]
     Active Substance: CROMOLYN SODIUM
     Indication: MAST CELL ACTIVATION SYNDROME
     Dosage: 200 MG, 4X/DAY
     Route: 048
  2. SINGULAIR [Concomitant]
     Active Substance: MONTELUKAST SODIUM
  3. PATANASE [Concomitant]
     Active Substance: OLOPATADINE HYDROCHLORIDE
  4. TIZANIDINE. [Concomitant]
     Active Substance: TIZANIDINE
  5. CETIRIZINE [Concomitant]
     Active Substance: CETIRIZINE HYDROCHLORIDE
  6. LIDOCAINE PATCHES [Concomitant]
     Active Substance: LIDOCAINE
     Dosage: UNK, AS NEEDED
  7. VITAMIN C-D [Concomitant]
  8. AUVI-Q [Concomitant]
     Active Substance: EPINEPHRINE
  9. ZYRTEC [Concomitant]
     Active Substance: CETIRIZINE HYDROCHLORIDE
  10. DICLOFENAC [Concomitant]
     Active Substance: DICLOFENAC
  11. BOTOX [Concomitant]
     Active Substance: ONABOTULINUMTOXINA
  12. FLUTICASONE. [Concomitant]
     Active Substance: FLUTICASONE
  13. ZANTAC [Concomitant]
     Active Substance: RANITIDINE HYDROCHLORIDE
  14. CITRACAL [Concomitant]
     Active Substance: CALCIUM CITRATE
  15. DEXILANT [Concomitant]
     Active Substance: DEXLANSOPRAZOLE
  16. SYNTHROID [Concomitant]
     Active Substance: LEVOTHYROXINE SODIUM

REACTIONS (9)
  - Secretion discharge [Recovered/Resolved]
  - Diarrhoea [Recovered/Resolved]
  - Drug effect decreased [Unknown]
  - Abdominal pain [Recovered/Resolved]
  - Irritable bowel syndrome [Unknown]
  - Infection [Unknown]
  - Intentional overdose [Unknown]
  - Emotional distress [Unknown]
  - Feeling abnormal [Unknown]

NARRATIVE: CASE EVENT DATE: 2017
